FAERS Safety Report 11232641 (Version 3)
Quarter: 2015Q3

REPORT INFORMATION
  Report Type: Report from Study
  Country: PL (occurrence: PL)
  Receive Date: 20150701
  Receipt Date: 20150828
  Transmission Date: 20151125
  Serious: Yes (Other)
  Sender: FDA-Public Use
  Company Number: PHHY2014PL147934

PATIENT
  Age: 67 Year
  Sex: Female
  Weight: 66 kg

DRUGS (2)
  1. TASIGNA [Suspect]
     Active Substance: NILOTINIB
     Dosage: 200 MG, BID (2X200MG)
     Route: 048
     Dates: start: 201302
  2. TASIGNA [Suspect]
     Active Substance: NILOTINIB
     Indication: CHRONIC MYELOID LEUKAEMIA
     Dosage: 800 MG, UNK
     Route: 048
     Dates: start: 2013

REACTIONS (7)
  - Alopecia [Unknown]
  - Rash [Recovering/Resolving]
  - Muscle spasms [Recovering/Resolving]
  - Constipation [Not Recovered/Not Resolved]
  - Hypothyroidism [Unknown]
  - Alanine aminotransferase increased [Unknown]
  - Blood glucose increased [Unknown]

NARRATIVE: CASE EVENT DATE: 201406
